FAERS Safety Report 9214483 (Version 3)
Quarter: 2013Q3

REPORT INFORMATION
  Report Type: Report from Study
  Country: BR (occurrence: BR)
  Receive Date: 20130405
  Receipt Date: 20130724
  Transmission Date: 20140515
  Serious: Yes (Hospitalization)
  Sender: FDA-Public Use
  Company Number: BR-ROCHE-1210043

PATIENT
  Sex: Female
  Weight: 56 kg

DRUGS (13)
  1. MABTHERA [Suspect]
     Indication: RHEUMATOID ARTHRITIS
     Dosage: LAST INFUSION ON 15/MAY/2013 (D15)
     Route: 065
     Dates: start: 20100901
  2. PREDNISONE [Concomitant]
  3. PANTOPRAZOLE [Concomitant]
     Indication: GASTRIC DISORDER
     Route: 065
  4. TYLENOL [Concomitant]
  5. LUFTAL [Concomitant]
  6. PROTOS [Concomitant]
  7. URSACOL [Concomitant]
     Indication: LIVER DISORDER
     Route: 065
  8. CHONDROITIN [Concomitant]
     Indication: ARTHROPATHY
     Route: 065
  9. CORTISONE [Concomitant]
     Indication: ARTHRITIS
     Route: 065
  10. TYLENOL [Concomitant]
     Route: 065
  11. MOTILIUM (BRAZIL) [Concomitant]
     Indication: GASTRIC DISORDER
  12. DIACEREIN [Concomitant]
     Indication: ARTHROPATHY
     Route: 065
  13. LUFTAL (BRAZIL) [Concomitant]

REACTIONS (2)
  - Erysipelas [Recovered/Resolved]
  - Pulmonary embolism [Recovering/Resolving]
